FAERS Safety Report 9284988 (Version 8)
Quarter: 2015Q3

REPORT INFORMATION
  Report Type: Report from Study
  Country: JP (occurrence: JP)
  Receive Date: 20130513
  Receipt Date: 20150925
  Transmission Date: 20151125
  Serious: Yes (Hospitalization, Other)
  Sender: FDA-Public Use
  Company Number: PHHY2013JP046617

PATIENT
  Age: 37 Year
  Sex: Female
  Weight: 77 kg

DRUGS (17)
  1. CLOZARIL [Suspect]
     Active Substance: CLOZAPINE
     Dosage: 100 MG, QD
     Route: 048
     Dates: start: 20130425, end: 20130428
  2. CLOZARIL [Suspect]
     Active Substance: CLOZAPINE
     Dosage: 75 MG, QD
     Route: 048
     Dates: start: 20130410, end: 20130411
  3. MAGLAX [Concomitant]
     Active Substance: MAGNESIUM OXIDE
     Indication: PRODUCT USED FOR UNKNOWN INDICATION
     Dosage: 990 MG, QD
     Route: 048
     Dates: start: 20130417, end: 20130428
  4. CLOZARIL [Suspect]
     Active Substance: CLOZAPINE
     Dosage: 150 MG, QD
     Route: 048
     Dates: start: 20130423, end: 20130423
  5. CLOZARIL [Suspect]
     Active Substance: CLOZAPINE
     Dosage: 100 MG, QD
     Route: 048
     Dates: start: 20130412, end: 20130413
  6. PREDONINE [Concomitant]
     Active Substance: PREDNISOLONE\PREDNISOLONE ACETATE\PREDNISOLONE SODIUM SUCCINATE
     Indication: PRODUCT USED FOR UNKNOWN INDICATION
     Dosage: 5 MG, QD
     Route: 048
     Dates: start: 20130403, end: 20130428
  7. BENZALIN [Concomitant]
     Active Substance: NITRAZEPAM
     Indication: SCHIZOPHRENIA, UNDIFFERENTIATED TYPE
     Dosage: 5 MG, QD
     Route: 048
     Dates: start: 20130403, end: 20130428
  8. MUCOSTA [Concomitant]
     Active Substance: REBAMIPIDE
     Indication: PRODUCT USED FOR UNKNOWN INDICATION
     Dosage: 100 MG, QD
     Route: 048
     Dates: start: 20130403, end: 20130428
  9. CLOZARIL [Suspect]
     Active Substance: CLOZAPINE
     Dosage: 25 MG, QD
     Route: 048
     Dates: start: 20130404, end: 20130406
  10. CLOZARIL [Suspect]
     Active Substance: CLOZAPINE
     Dosage: 50 MG, QD
     Route: 048
     Dates: start: 20130407, end: 20130409
  11. CLOZARIL [Suspect]
     Active Substance: CLOZAPINE
     Indication: SCHIZOPHRENIA, UNDIFFERENTIATED TYPE
     Dosage: 12.5 MG, QD
     Route: 048
     Dates: start: 20130403, end: 20130403
  12. CLOZARIL [Suspect]
     Active Substance: CLOZAPINE
     Dosage: 150 MG, QD
     Route: 048
     Dates: start: 20130417, end: 20130419
  13. LIMAS [Suspect]
     Active Substance: LITHIUM CARBONATE
     Indication: SCHIZOPHRENIA, UNDIFFERENTIATED TYPE
     Dosage: 400 MG, QD
     Route: 048
     Dates: start: 20130403, end: 20130428
  14. CLOZARIL [Suspect]
     Active Substance: CLOZAPINE
     Dosage: 175 MG, QD
     Route: 048
     Dates: start: 20130420, end: 20130422
  15. THYRADIN S [Concomitant]
     Active Substance: LEVOTHYROXINE SODIUM
     Indication: PRODUCT USED FOR UNKNOWN INDICATION
     Dosage: 100 MG, QD
     Route: 048
     Dates: start: 20130403, end: 20130428
  16. CLOZARIL [Suspect]
     Active Substance: CLOZAPINE
     Dosage: 125 MG, QD
     Route: 048
     Dates: start: 20130414, end: 20130416
  17. CLOZARIL [Suspect]
     Active Substance: CLOZAPINE
     Dosage: 125 MG, QD
     Route: 048
     Dates: start: 20130424, end: 20130424

REACTIONS (24)
  - Pneumonia aspiration [Recovered/Resolved]
  - Lymphocyte percentage increased [Recovered/Resolved]
  - Blood pressure decreased [Not Recovered/Not Resolved]
  - Neutrophil count increased [Recovered/Resolved]
  - Dyslalia [Not Recovered/Not Resolved]
  - Dyskinesia [Not Recovered/Not Resolved]
  - Altered state of consciousness [Recovering/Resolving]
  - Respiratory depression [Recovering/Resolving]
  - Psychiatric symptom [Unknown]
  - Depressed level of consciousness [Unknown]
  - Hypopituitarism [Recovered/Resolved]
  - Sedation [Unknown]
  - Dyspnoea [Unknown]
  - Hypothalamo-pituitary disorder [Recovered/Resolved]
  - Diabetes insipidus [Recovered/Resolved]
  - White blood cell count increased [Recovered/Resolved]
  - Encephalitis autoimmune [Unknown]
  - Pyrexia [Recovered/Resolved]
  - Hypernatraemia [Recovered/Resolved]
  - Condition aggravated [Recovered/Resolved]
  - Seizure [Unknown]
  - Hypotonia [Unknown]
  - Myoclonus [Recovered/Resolved]
  - Balance disorder [Unknown]

NARRATIVE: CASE EVENT DATE: 20130409
